FAERS Safety Report 13931437 (Version 2)
Quarter: 2017Q3

REPORT INFORMATION
  Report Type: Spontaneous
  Country: CO (occurrence: CO)
  Receive Date: 20170903
  Receipt Date: 20170918
  Transmission Date: 20171127
  Serious: Yes (Disabling)
  Sender: FDA-Public Use
  Company Number: PHHY2017CO106472

PATIENT
  Sex: Female
  Weight: 57 kg

DRUGS (2)
  1. COSENTYX [Suspect]
     Active Substance: SECUKINUMAB
     Dosage: 2 DF (TWO INJECTABLE SYRINGES), QMO
     Route: 065
     Dates: start: 201705, end: 201705
  2. COSENTYX [Suspect]
     Active Substance: SECUKINUMAB
     Indication: PUSTULAR PSORIASIS
     Dosage: 2 DF (TWO INJECTABLE SYRINGES), QMO
     Route: 065
     Dates: start: 20160823

REACTIONS (4)
  - Malaise [Unknown]
  - Product use in unapproved indication [Unknown]
  - Mood altered [Unknown]
  - Rash [Recovering/Resolving]

NARRATIVE: CASE EVENT DATE: 201704
